FAERS Safety Report 6238488-6 (Version None)
Quarter: 2009Q2

REPORT INFORMATION
  Report Type: 
  Country: None (occurrence: None)
  Receive Date: 20090622
  Receipt Date: 20090616
  Transmission Date: 20091009
  Serious: Yes (Death)
  Sender: FDA-Public Use
  Company Number: US-ROCHE-638915

PATIENT
  Sex: Female

DRUGS (1)
  1. CAPECITABINE [Suspect]
     Indication: BREAST CANCER METASTATIC
     Dosage: ONE TABLET, BID X 14 DAYS AND 7 DAYS OFF
     Route: 048
     Dates: start: 20090115, end: 20090601

REACTIONS (1)
  - DEATH [None]
